FAERS Safety Report 8023957-9 (Version None)
Quarter: 2011Q4

REPORT INFORMATION
  Report Type: 
  Country: None (occurrence: None)
  Receive Date: 20111230
  Receipt Date: 20111222
  Transmission Date: 20120403
  Serious: Yes (Hospitalization)
  Sender: FDA-Public Use
  Company Number: JPI-P-018890

PATIENT
  Age: 25 Year
  Sex: Female
  Weight: 111.1313 kg

DRUGS (4)
  1. XYREM [Suspect]
     Indication: NARCOLEPSY
     Dosage: 4.5 GM (2.25 GM, 2 IN 1 D), ORAL
     Route: 048
     Dates: start: 20110516
  2. ESCITALOPRAM OXALATE [Concomitant]
  3. AMPHETAMINE, DEXTROAMPHETAMINE MIXED SALTS [Concomitant]
  4. LAMOTRIGINE [Concomitant]

REACTIONS (8)
  - OVARIAN TORSION [None]
  - HUNGER [None]
  - FATIGUE [None]
  - INITIAL INSOMNIA [None]
  - CONDITION AGGRAVATED [None]
  - PAIN [None]
  - THIRST [None]
  - STOMATITIS [None]
